FAERS Safety Report 9009514 (Version 1)
Quarter: 2013Q1

REPORT INFORMATION
  Report Type: Spontaneous
  Country: US (occurrence: US)
  Receive Date: 20130110
  Receipt Date: 20130110
  Transmission Date: 20140127
  Serious: Yes (Hospitalization)
  Sender: FDA-Public Use
  Company Number: US-GLAXOSMITHKLINE-A1007847A

PATIENT
  Age: 74 Year
  Sex: Female
  Weight: 100 kg

DRUGS (8)
  1. ADVAIR [Suspect]
     Indication: PRODUCT USED FOR UNKNOWN INDICATION
     Route: 055
     Dates: start: 2008
  2. SPIRIVA [Suspect]
     Indication: CHRONIC OBSTRUCTIVE PULMONARY DISEASE
     Dosage: 18MCG PER DAY
     Route: 055
     Dates: start: 2008
  3. XOPENEX [Concomitant]
     Route: 055
  4. COZAAR [Concomitant]
     Indication: CARDIAC DISORDER
     Dosage: 50MG TWICE PER DAY
     Route: 048
  5. FUROSEMIDE [Concomitant]
     Route: 048
  6. ASPIRIN [Concomitant]
     Dosage: 81MG AS REQUIRED
     Route: 048
  7. COREG [Concomitant]
     Dosage: 25MG TWICE PER DAY
     Route: 048
  8. OXYGEN [Concomitant]
     Dates: start: 2007

REACTIONS (11)
  - Pancreatitis acute [Not Recovered/Not Resolved]
  - Cerebrovascular accident [Recovered/Resolved with Sequelae]
  - Knee arthroplasty [Unknown]
  - Cholecystectomy [Unknown]
  - Cholelithotomy [Unknown]
  - Joint range of motion decreased [Recovered/Resolved]
  - Cholelithiasis [Unknown]
  - Oxygen consumption increased [Not Recovered/Not Resolved]
  - Dyspnoea [Not Recovered/Not Resolved]
  - Tremor [Not Recovered/Not Resolved]
  - Memory impairment [Unknown]
